FAERS Safety Report 4866913-1 (Version None)
Quarter: 2005Q4

REPORT INFORMATION
  Report Type: 
  Country: None (occurrence: None)
  Receive Date: 20051222
  Receipt Date: 20051213
  Transmission Date: 20060501
  Serious: Yes (Other)
  Sender: FDA-Public Use
  Company Number: 2005-11-1655

PATIENT
  Age: 68 Year
  Sex: Male
  Weight: 54 kg

DRUGS (1)
  1. CLARITIN [Suspect]
     Indication: XERODERMA
     Dosage: 10 MG ORAL
     Route: 048
     Dates: start: 20051114, end: 20051122

REACTIONS (5)
  - ANAPHYLACTIC SHOCK [None]
  - DISCOMFORT [None]
  - DYSSTASIA [None]
  - LOSS OF CONSCIOUSNESS [None]
  - PRURITUS [None]
